FAERS Safety Report 7418193-0 (Version None)
Quarter: 2011Q2

REPORT INFORMATION
  Report Type: 
  Country: None (occurrence: None)
  Receive Date: 20110415
  Receipt Date: 20110405
  Transmission Date: 20111010
  Serious: Yes (Death)
  Sender: FDA-Public Use
  Company Number: AU-GILEAD-E2B_00001160

PATIENT
  Sex: Female
  Weight: 59 kg

DRUGS (9)
  1. IRBESARTAN [Concomitant]
     Indication: SCLERODERMA
  2. CEFTRIAXONE [Suspect]
     Indication: PRODUCT USED FOR UNKNOWN INDICATION
  3. AMBRISENTAN [Suspect]
     Indication: SCLERODERMA
  4. AMBRISENTAN [Suspect]
     Indication: PULMONARY HYPERTENSION
     Dates: start: 20110221
  5. THYROXINE [Concomitant]
     Indication: SCLERODERMA
  6. PREDNISONE [Concomitant]
     Indication: SCLERODERMA
  7. AMLODIPINE [Concomitant]
     Indication: SCLERODERMA
  8. OMEPRAZOLE [Concomitant]
     Indication: SCLERODERMA
  9. CITRACAL + D [Concomitant]
     Indication: SCLERODERMA

REACTIONS (7)
  - CARDIAC ARREST [None]
  - ANAPHYLACTIC REACTION [None]
  - PLEURITIC PAIN [None]
  - DYSPNOEA [None]
  - DRUG INEFFECTIVE [None]
  - PNEUMONIA [None]
  - COUGH [None]
